FAERS Safety Report 20036135 (Version 2)
Quarter: 2021Q4

REPORT INFORMATION
  Report Type: Spontaneous
  Country: US (occurrence: US)
  Receive Date: 20211105
  Receipt Date: 20211110
  Transmission Date: 20220303
  Serious: Yes (Hospitalization)
  Sender: FDA-Public Use
  Company Number: US-JNJFOC-20211100676

PATIENT
  Age: 31 Year
  Sex: Female
  Weight: 70 kg

DRUGS (1)
  1. ACETAMINOPHEN [Suspect]
     Active Substance: ACETAMINOPHEN
     Indication: Product used for unknown indication
     Dosage: 6000 MG/DAY FOR 5 DAYS. TOTAL 30000 MG OVER 5 DAYS
     Route: 048
     Dates: end: 19991130

REACTIONS (6)
  - Acute hepatic failure [Unknown]
  - Hepatic necrosis [Unknown]
  - Hepatic steatosis [Unknown]
  - Blood creatinine increased [Unknown]
  - Exposure during pregnancy [Unknown]
  - Accidental overdose [Unknown]
